FAERS Safety Report 6708499-2 (Version None)
Quarter: 2010Q2

REPORT INFORMATION
  Report Type: 
  Country: None (occurrence: None)
  Receive Date: 20100503
  Receipt Date: 20090423
  Transmission Date: 20101027
  Serious: No
  Sender: FDA-Public Use
  Company Number: US-ASTRAZENECA-2009UW10220

PATIENT
  Age: 57 Year
  Sex: Male
  Weight: 90.7 kg

DRUGS (12)
  1. NEXIUM [Suspect]
     Route: 048
  2. BALSALAZIDE [Concomitant]
  3. PLAVIX [Concomitant]
  4. VYTORIN [Concomitant]
  5. AMLODIPINE [Concomitant]
  6. TOPROL-XL [Concomitant]
  7. ASPIRIN [Concomitant]
  8. DIAZEPAM [Concomitant]
  9. MULTI-VITAMIN [Concomitant]
  10. LOVAZA [Concomitant]
  11. NITROGLYCERIN [Concomitant]
  12. NITROGLYCERIN [Concomitant]

REACTIONS (4)
  - HYPERSENSITIVITY [None]
  - LIP SWELLING [None]
  - PENIS DISORDER [None]
  - TONGUE OEDEMA [None]
